FAERS Safety Report 4432206-X (Version None)
Quarter: 2004Q3

REPORT INFORMATION
  Report Type: 
  Country: None (occurrence: None)
  Receive Date: 20040825
  Receipt Date: 20040623
  Transmission Date: 20050211
  Serious: Yes (Other)
  Sender: FDA-Public Use
  Company Number: DE-ROCHE-371711

PATIENT
  Age: 58 Year
  Sex: Female
  Weight: 64 kg

DRUGS (6)
  1. PEGASYS [Suspect]
     Indication: HEPATITIS C
     Route: 058
     Dates: start: 20040618
  2. COPEGUS [Suspect]
     Indication: HEPATITIS C
     Route: 048
     Dates: start: 20040618
  3. MARCUMAR [Concomitant]
     Indication: PULMONARY EMBOLISM
     Dosage: 4.5-5.0 / WEEK INCREASED TO 6.5 TABLETS / WEEK
     Route: 048
     Dates: start: 20030815
  4. ATORVASTATIN CALCIUM [Concomitant]
     Route: 048
     Dates: start: 20030815
  5. MICARDIS [Concomitant]
     Route: 048
     Dates: start: 20030815
  6. CONCOR [Concomitant]
     Dates: start: 20030815

REACTIONS (1)
  - INTERNATIONAL NORMALISED RATIO DECREASED [None]
